FAERS Safety Report 17813093 (Version 1)
Quarter: 2020Q2

REPORT INFORMATION
  Report Type: Spontaneous
  Country: CA (occurrence: CA)
  Receive Date: 20200521
  Receipt Date: 20200521
  Transmission Date: 20200714
  Serious: Yes (Other)
  Sender: FDA-Public Use
  Company Number: CA-009507513-2005CAN004544

PATIENT
  Age: 55 Year
  Sex: Female

DRUGS (19)
  1. PANTOPRAZOLE [Concomitant]
     Active Substance: PANTOPRAZOLE
     Route: 065
  2. COD LIVER OIL [Concomitant]
     Active Substance: COD LIVER OIL
     Route: 065
  3. ACTEMRA [Suspect]
     Active Substance: TOCILIZUMAB
     Indication: RHEUMATOID ARTHRITIS
     Dosage: 440 MILLIGRAM; DOSAGE FORM NOT SPECIFIED
     Route: 042
  4. METHOTREXATE. [Suspect]
     Active Substance: METHOTREXATE
     Indication: RHEUMATOID ARTHRITIS
     Route: 065
  5. ASPIRIN. [Concomitant]
     Active Substance: ASPIRIN
     Route: 065
  6. FOLIC ACID. [Concomitant]
     Active Substance: FOLIC ACID
     Dosage: DOSAGE FORM NOT SPECIFIED
     Route: 065
  7. MELATONIN [Concomitant]
     Active Substance: MELATONIN
     Route: 065
  8. TRAMADOL HYDROCHLORIDE. [Concomitant]
     Active Substance: TRAMADOL HYDROCHLORIDE
     Route: 065
  9. FOSAVANCE [Suspect]
     Active Substance: ALENDRONATE SODIUM\CHOLECALCIFEROL
     Indication: PRODUCT USED FOR UNKNOWN INDICATION
     Route: 065
  10. FLUCONAZOLE. [Suspect]
     Active Substance: FLUCONAZOLE
     Indication: ORAL CANDIDIASIS
     Dosage: DOSAGE FORM NOT SPECIFIED
     Route: 042
  11. ACETAMINOPHEN. [Concomitant]
     Active Substance: ACETAMINOPHEN
     Dosage: 1000 MILLIGRAM; DOSAGE FORM NOT SPECIFIED
     Route: 048
  12. DIPHENHYDRAMINE HYDROCHLORIDE. [Concomitant]
     Active Substance: DIPHENHYDRAMINE HYDROCHLORIDE
     Dosage: 50 MILLIGRAM
     Route: 048
  13. HUMALOG [Concomitant]
     Active Substance: INSULIN LISPRO
     Route: 065
  14. INDOMETHACIN. [Concomitant]
     Active Substance: INDOMETHACIN
     Route: 065
  15. ALBUTEROL. [Concomitant]
     Active Substance: ALBUTEROL
     Route: 065
  16. RITUXIMAB. [Suspect]
     Active Substance: RITUXIMAB
     Indication: RHEUMATOID ARTHRITIS
     Dosage: 1000 MILLIGRAM
     Route: 042
  17. METHYLPREDNISOLONE. [Concomitant]
     Active Substance: METHYLPREDNISOLONE
     Dosage: 100 MILLIGRAM
     Route: 042
  18. LEVEMIR [Concomitant]
     Active Substance: INSULIN DETEMIR
     Indication: TYPE 1 DIABETES MELLITUS
     Route: 058
  19. PREDNISONE. [Concomitant]
     Active Substance: PREDNISONE
     Route: 065

REACTIONS (9)
  - Therapeutic product effect decreased [Not Recovered/Not Resolved]
  - Pain in extremity [Not Recovered/Not Resolved]
  - Blood pressure fluctuation [Not Recovered/Not Resolved]
  - Weight decreased [Not Recovered/Not Resolved]
  - Oral candidiasis [Not Recovered/Not Resolved]
  - Foot fracture [Not Recovered/Not Resolved]
  - Lower respiratory tract infection [Not Recovered/Not Resolved]
  - Pain [Not Recovered/Not Resolved]
  - Ear infection [Not Recovered/Not Resolved]
